FAERS Safety Report 6218071-9 (Version None)
Quarter: 2009Q2

REPORT INFORMATION
  Report Type: 
  Country: None (occurrence: None)
  Receive Date: 20090608
  Receipt Date: 20090528
  Transmission Date: 20091009
  Serious: Yes (Disabling, Other)
  Sender: FDA-Public Use
  Company Number: US-JNJFOC-20090600560

PATIENT
  Sex: Male

DRUGS (1)
  1. REMICADE [Suspect]
     Indication: UVEITIS
     Route: 042

REACTIONS (2)
  - BLINDNESS [None]
  - GLAUCOMA [None]
